FAERS Safety Report 20714007 (Version 1)
Quarter: 2022Q2

REPORT INFORMATION
  Report Type: Spontaneous
  Country: US (occurrence: None)
  Receive Date: 20220415
  Receipt Date: 20220415
  Transmission Date: 20220720
  Serious: Yes (Hospitalization)
  Sender: FDA-Public Use
  Company Number: None

PATIENT
  Age: 27 Year
  Sex: Female
  Weight: 27.0 kg

DRUGS (11)
  1. HOMEOPATHICS [Suspect]
     Active Substance: HOMEOPATHICS
     Dosage: OTHER QUANTITY : 10 GTTS;?FREQUENCY : 3 TIMES A DAY;?
     Route: 048
  2. prednisione [Concomitant]
  3. CALCITRIOL [Concomitant]
     Active Substance: CALCITRIOL
  4. CHOLECALCIFEROL [Concomitant]
     Active Substance: CHOLECALCIFEROL
  5. INSULIN LISPRO [Concomitant]
     Active Substance: INSULIN LISPRO
  6. INSULIN GLARGINE [Concomitant]
     Active Substance: INSULIN GLARGINE
  7. PANCRELIPASE [Concomitant]
     Active Substance: PANCRELIPASE
  8. ATROPINE\DIPHENOXYLATE [Concomitant]
     Active Substance: ATROPINE\DIPHENOXYLATE
  9. ENOXAPARIN [Concomitant]
     Active Substance: ENOXAPARIN
  10. LIGAPLEX II [Concomitant]
  11. symbiotics colostrum chewables [Concomitant]

REACTIONS (4)
  - Product formulation issue [None]
  - Clostridium difficile infection [None]
  - Cachexia [None]
  - Oral candidiasis [None]

NARRATIVE: CASE EVENT DATE: 20220322
